FAERS Safety Report 6252450-9 (Version None)
Quarter: 2009Q3

REPORT INFORMATION
  Report Type: 
  Country: None (occurrence: None)
  Receive Date: 20090701
  Receipt Date: 20071231
  Transmission Date: 20100115
  Serious: Yes (Other)
  Sender: FDA-Public Use
  Company Number: US-ASTRAZENECA-2007UW05634

PATIENT
  Age: 18749 Day
  Sex: Male
  Weight: 73.5 kg

DRUGS (12)
  1. SEROQUEL [Suspect]
     Indication: BIPOLAR DISORDER
     Route: 048
     Dates: start: 20010101, end: 20020601
  2. HYDROCHLOROTHIAZIDE [Concomitant]
     Indication: BLOOD PRESSURE
     Route: 048
     Dates: start: 20011115
  3. HYDROCHLOROTHIAZIDE [Concomitant]
     Indication: SWELLING
     Route: 048
     Dates: start: 20011115
  4. AMITRIPTYLINE HCL [Concomitant]
     Indication: SLEEP DISORDER
     Route: 048
     Dates: start: 20010605
  5. RABEPRAZOLE NA [Concomitant]
     Indication: HYPERCHLORHYDRIA
     Route: 048
     Dates: start: 20011115
  6. TERAZOSIN HCL [Concomitant]
     Indication: BLOOD PRESSURE
     Dates: start: 20010605
  7. ATENOLOL [Concomitant]
     Indication: BLOOD PRESSURE
     Route: 048
     Dates: start: 20010605
  8. OXYCODONE CR [Concomitant]
     Dosage: 10 TO 80 MG DAILY
     Route: 048
     Dates: start: 20011115
  9. SALSALATE [Concomitant]
     Indication: PAIN
     Dates: start: 20011115
  10. GABAPENTIN [Concomitant]
     Route: 048
     Dates: start: 20010605
  11. LANSOPRAZOLE [Concomitant]
     Dosage: ONE CAPSULE 30 MINUTES BEFORE BREAKFAST EVERY DAY
     Dates: start: 20010605
  12. NICOTINE 21 MG/24 HR PATCH [Concomitant]
     Dosage: APPLY TO SKIN PATCH TO SPECIFIED AREA DAILY
     Dates: start: 20010605

REACTIONS (2)
  - NEUROPATHY PERIPHERAL [None]
  - TYPE 2 DIABETES MELLITUS [None]
